FAERS Safety Report 26032159 (Version 1)
Quarter: 2025Q4

REPORT INFORMATION
  Report Type: Spontaneous
  Country: US (occurrence: US)
  Receive Date: 20251112
  Receipt Date: 20251112
  Transmission Date: 20260117
  Serious: No
  Sender: CSL BEHRING
  Company Number: US-BEH-2025224767

PATIENT
  Age: 64 Year
  Sex: Female

DRUGS (1)
  1. PRIVIGEN [Suspect]
     Active Substance: HUMAN IMMUNOGLOBULIN G
     Indication: Myasthenia gravis
     Dosage: 80 G, Q3W
     Route: 042

REACTIONS (6)
  - Infusion site swelling [Recovering/Resolving]
  - Infusion site induration [Recovered/Resolved]
  - Infusion site coldness [Recovered/Resolved]
  - Infusion site erythema [Recovering/Resolving]
  - Discomfort [Unknown]
  - Off label use [Unknown]

NARRATIVE: CASE EVENT DATE: 20251028
